FAERS Safety Report 25009851 (Version 1)
Quarter: 2025Q1

REPORT INFORMATION
  Report Type: Spontaneous
  Country: NL (occurrence: NL)
  Receive Date: 20250225
  Receipt Date: 20250225
  Transmission Date: 20250409
  Serious: Yes (Life-Threatening, Hospitalization)
  Sender: TEVA
  Company Number: None

PATIENT
  Age: 41 Year
  Sex: Female
  Weight: 95 kg

DRUGS (1)
  1. ETHINYL ESTRADIOL\LEVONORGESTREL [Suspect]
     Active Substance: ETHINYL ESTRADIOL\LEVONORGESTREL
     Indication: Endometriosis
     Dosage: ETHINYLESTRADIOL LEVONORGESTREL TEVA TAB OMH 0.03/0.15MG 1X PER DAY (EVENING)
     Route: 048
     Dates: start: 20221001, end: 20240512

REACTIONS (3)
  - Thrombosis [Recovering/Resolving]
  - Pulmonary embolism [Recovering/Resolving]
  - Menstrual headache [Recovering/Resolving]
